FAERS Safety Report 4706989-5 (Version None)
Quarter: 2005Q2

REPORT INFORMATION
  Report Type: 
  Country: None (occurrence: None)
  Receive Date: 20050630
  Receipt Date: 20050615
  Transmission Date: 20051028
  Serious: Yes (Life-Threatening, Hospitalization)
  Sender: FDA-Public Use
  Company Number: 2005-BP-10084RO

PATIENT
  Age: 35 Year
  Sex: Female

DRUGS (2)
  1. CALCIUM CARBONATE (CALCIUM CARBONATE) [Suspect]
     Indication: DYSPEPSIA
     Dosage: UP TO 10 TABS/D (3 GM ELEM, CA) PO
     Route: 048
  2. MAGNESIUM CARBONATE (MAGNESIUM CARBONATE) [Suspect]
     Indication: DYSPEPSIA
     Dosage: UP TO 10 TABLETS A DAY (80 MG), PO
     Route: 048

REACTIONS (20)
  - ABDOMINAL TENDERNESS [None]
  - APGAR SCORE LOW [None]
  - BLOOD CREATININE INCREASED [None]
  - BLOOD PARATHYROID HORMONE DECREASED [None]
  - BLOOD PHOSPHORUS INCREASED [None]
  - BLOOD UREA INCREASED [None]
  - CAESAREAN SECTION [None]
  - DELIRIUM [None]
  - DEPRESSED LEVEL OF CONSCIOUSNESS [None]
  - DRUG EXPOSURE DURING PREGNANCY [None]
  - FOETAL HEART RATE ABNORMAL [None]
  - HYPOCALCAEMIA [None]
  - JAUNDICE NEONATAL [None]
  - MILK-ALKALI SYNDROME [None]
  - NEONATAL RESPIRATORY DISTRESS SYNDROME [None]
  - PANCREATITIS ACUTE [None]
  - PRE-ECLAMPSIA [None]
  - SEPSIS NEONATAL [None]
  - VITAMIN D INCREASED [None]
  - WHITE BLOOD CELLS URINE POSITIVE [None]
